FAERS Safety Report 8367642-2 (Version None)
Quarter: 2012Q1

REPORT INFORMATION
  Report Type: 
  Country: None (occurrence: None)
  Receive Date: 20120323
  Receipt Date: 20111222
  Transmission Date: 20120608
  Serious: Yes (Other)
  Sender: FDA-Public Use
  Company Number: 163-21880-11112085

PATIENT
  Age: 87 Year
  Sex: Female
  Weight: 56.6996 kg

DRUGS (16)
  1. FISH (COD-LIVER OIL) [Concomitant]
  2. ACCUPRIL [Concomitant]
  3. QUINAPRIL HCL [Concomitant]
  4. ATENOLOL [Concomitant]
  5. NEXIUM [Concomitant]
  6. REVLIMID [Suspect]
     Indication: CHRONIC LYMPHOCYTIC LEUKAEMIA
     Dosage: 10 MG, 1 IN 1 D, PO ; 5 MG, DAILY X 28 DAYS, PO
     Route: 048
     Dates: start: 20090701, end: 20100318
  7. REVLIMID [Suspect]
     Indication: CHRONIC LYMPHOCYTIC LEUKAEMIA
     Dosage: 10 MG, 1 IN 1 D, PO ; 5 MG, DAILY X 28 DAYS, PO
     Route: 048
     Dates: start: 20090701, end: 20090701
  8. CALCIUM CARBONATE [Concomitant]
  9. AFINITOR [Concomitant]
  10. LEVOTHYROXINE SODIUM [Concomitant]
  11. CALCIUM CARBONATE [Concomitant]
  12. MULTIVITAMIN [Concomitant]
  13. FLUNISOLIDE (FLUNISOLIDE) [Concomitant]
  14. ACETAMINOPHEN [Concomitant]
  15. ASPIRIN [Concomitant]
  16. FAMOTIDINE [Concomitant]

REACTIONS (1)
  - CHRONIC LYMPHOCYTIC LEUKAEMIA [None]
